FAERS Safety Report 16714839 (Version 1)
Quarter: 2019Q3

REPORT INFORMATION
  Report Type: Spontaneous
  Country: CA (occurrence: CA)
  Receive Date: 20190819
  Receipt Date: 20190819
  Transmission Date: 20191005
  Serious: Yes (Other)
  Sender: FDA-Public Use
  Company Number: CA-MYLANLABS-2019M1076202

PATIENT

DRUGS (1)
  1. SYNTHROID [Suspect]
     Active Substance: LEVOTHYROXINE SODIUM
     Indication: HYPOTHYROIDISM

REACTIONS (11)
  - Vision blurred [Unknown]
  - Suspected product contamination [Unknown]
  - Dry skin [Unknown]
  - Alopecia [Unknown]
  - Conjunctivitis [Unknown]
  - Hyperthyroidism [Unknown]
  - Ocular hyperaemia [Unknown]
  - Sensitive skin [Unknown]
  - Hyperaesthesia teeth [Unknown]
  - Mental status changes [Unknown]
  - Malaise [Unknown]
